FAERS Safety Report 21969409 (Version 3)
Quarter: 2023Q1

REPORT INFORMATION
  Report Type: Spontaneous
  Country: JP (occurrence: JP)
  Receive Date: 20230208
  Receipt Date: 20230329
  Transmission Date: 20230417
  Serious: Yes (Life-Threatening, Disabling, Other)
  Sender: FDA-Public Use
  Company Number: JP-MSD-2301JPN003589J

PATIENT
  Age: 42 Year
  Sex: Male
  Weight: 52 kg

DRUGS (19)
  1. NOXAFIL [Suspect]
     Active Substance: POSACONAZOLE
     Indication: Infective spondylitis
     Dosage: 300 MILLIGRAM, QD
     Route: 041
     Dates: start: 20230117, end: 20230208
  2. NOXAFIL [Suspect]
     Active Substance: POSACONAZOLE
     Indication: Encephalitis
  3. PREDNISOLONE SODIUM SUCCINATE [Suspect]
     Active Substance: PREDNISOLONE SODIUM SUCCINATE
     Indication: Haemophagocytic lymphohistiocytosis
     Dosage: 20 MILLIGRAM, TID
     Route: 042
     Dates: start: 20230117, end: 20230124
  4. POTASSIUM CHLORIDE [Suspect]
     Active Substance: POTASSIUM CHLORIDE
     Indication: Hypokalaemia
     Dosage: 1200 MILLIGRAM, BID
     Route: 048
     Dates: start: 20230107, end: 20230124
  5. VANCOMYCIN HYDROCHLORIDE [Suspect]
     Active Substance: VANCOMYCIN HYDROCHLORIDE
     Indication: Infective spondylitis
     Dosage: 750 MILLIGRAM, BID
     Route: 042
     Dates: start: 20230104, end: 20230124
  6. VANCOMYCIN HYDROCHLORIDE [Suspect]
     Active Substance: VANCOMYCIN HYDROCHLORIDE
     Indication: Encephalitis
  7. MEROPENEM [Suspect]
     Active Substance: MEROPENEM
     Indication: Infective spondylitis
     Dosage: 2 GRAM, TID
     Route: 042
     Dates: start: 20230117, end: 20230124
  8. MEROPENEM [Suspect]
     Active Substance: MEROPENEM
     Indication: Encephalitis
  9. AMBISOME [Concomitant]
     Active Substance: AMPHOTERICIN B
     Indication: Infective spondylitis
     Dosage: 250 MILLIGRAM, QD
     Route: 042
     Dates: start: 20230114, end: 20230116
  10. AMBISOME [Concomitant]
     Active Substance: AMPHOTERICIN B
     Indication: Encephalitis
  11. LOXOPROFEN SODIUM [Concomitant]
     Active Substance: LOXOPROFEN SODIUM
     Indication: Infective spondylitis
     Dosage: 60 MILLIGRAM, TID
     Route: 048
     Dates: start: 20221227, end: 20230110
  12. LANSOPRAZOLE [Concomitant]
     Active Substance: LANSOPRAZOLE
     Indication: Infective spondylitis
     Dosage: 15 MILLIGRAM, QD
     Route: 048
     Dates: start: 20221227, end: 20230110
  13. DIETARY SUPPLEMENT\PROBIOTICS [Concomitant]
     Active Substance: DIETARY SUPPLEMENT\PROBIOTICS
     Indication: Diarrhoea
     Dosage: 2 DOSAGE FORM, TID
     Route: 048
     Dates: start: 20161020, end: 20230108
  14. CALONAL [Concomitant]
     Active Substance: ACETAMINOPHEN
     Indication: Infective spondylitis
     Dosage: 400 MILLIGRAM, BID
     Route: 048
     Dates: start: 20221229, end: 20230109
  15. SODIUM CHLORIDE [Concomitant]
     Active Substance: SODIUM CHLORIDE
     Indication: Hyponatraemia
     Dosage: 1 GRAM, TID
     Route: 048
     Dates: start: 20230105, end: 20230118
  16. CEFEPIME HYDROCHLORIDE [Concomitant]
     Active Substance: CEFEPIME HYDROCHLORIDE
     Indication: Infective spondylitis
     Dosage: 2 GRAM, BID
     Route: 042
     Dates: start: 20230104, end: 20230116
  17. ACYCLOVIR [Concomitant]
     Active Substance: ACYCLOVIR
     Indication: Meningoencephalitis herpetic
     Dosage: 500 MILLIGRAM, QD
     Route: 042
     Dates: start: 20230110, end: 20230110
  18. AMPICILLIN SODIUM [Concomitant]
     Active Substance: AMPICILLIN SODIUM
     Indication: Meningitis listeria
     Dosage: 1 GRAM, QID
     Route: 042
     Dates: start: 20230110, end: 20230113
  19. ITRACONAZOLE [Concomitant]
     Active Substance: ITRACONAZOLE
     Indication: Chronic granulomatous disease
     Dosage: 200 MILLIGRAM, QD
     Route: 048
     Dates: start: 20161020, end: 20230113

REACTIONS (4)
  - Cardio-respiratory arrest [Recovered/Resolved with Sequelae]
  - Ventricular fibrillation [Recovered/Resolved with Sequelae]
  - Haemorrhagic cerebral infarction [Recovered/Resolved with Sequelae]
  - Hypokalaemia [Recovered/Resolved]

NARRATIVE: CASE EVENT DATE: 20230120
